FAERS Safety Report 11247069 (Version 1)
Quarter: 2015Q3

REPORT INFORMATION
  Report Type: Spontaneous
  Country: US (occurrence: US)
  Receive Date: 20150708
  Receipt Date: 20150708
  Transmission Date: 20151125
  Serious: Yes (Other)
  Sender: FDA-Public Use
  Company Number: US-PFIZER INC-2015222089

PATIENT
  Age: 72 Year
  Sex: Male
  Weight: 57 kg

DRUGS (4)
  1. PREDNISONE. [Concomitant]
     Active Substance: PREDNISONE
     Indication: RHEUMATOID ARTHRITIS
     Dosage: 10 MG, DAILY (10MG DAILY AS NEEDED)
  2. METHOTREXATE [Concomitant]
     Active Substance: METHOTREXATE
  3. SUTENT [Suspect]
     Active Substance: SUNITINIB MALATE
     Indication: METASTATIC RENAL CELL CARCINOMA
     Dosage: 50 MG, 28 DAYS ON/14 DAYS OFF
     Dates: start: 20130201
  4. AREDIA [Concomitant]
     Active Substance: PAMIDRONATE DISODIUM
     Dosage: UNK, MONTHLY

REACTIONS (7)
  - Weight decreased [Unknown]
  - Hypertension [Recovered/Resolved]
  - Pain in extremity [Unknown]
  - Pain in jaw [Unknown]
  - Muscle atrophy [Unknown]
  - Joint swelling [Unknown]
  - Amnesia [Unknown]
